FAERS Safety Report 23170361 (Version 1)
Quarter: 2023Q4

REPORT INFORMATION
  Report Type: Spontaneous
  Country: FI (occurrence: FI)
  Receive Date: 20231110
  Receipt Date: 20231110
  Transmission Date: 20240110
  Serious: Yes (Hospitalization)
  Sender: FDA-Public Use
  Company Number: None

PATIENT
  Age: 86 Year
  Sex: Male

DRUGS (6)
  1. AMLODIPINE BESYLATE [Suspect]
     Active Substance: AMLODIPINE BESYLATE
     Indication: Product used for unknown indication
     Dosage: BLOOD PRESSURE MEDICATION WAS DECREASED
  2. DONEPEZIL HYDROCHLORIDE [Suspect]
     Active Substance: DONEPEZIL HYDROCHLORIDE
     Indication: Product used for unknown indication
     Dosage: BLOOD PRESSURE MEDICATION WAS DECREASED INITIALLY
  3. BISOPROLOL FUMARATE [Suspect]
     Active Substance: BISOPROLOL FUMARATE
     Indication: Product used for unknown indication
     Dosage: BLOOD PRESSURE MEDICATION WAS DECREASED INITIALLY
  4. CANDESARTAN [Suspect]
     Active Substance: CANDESARTAN
     Indication: Product used for unknown indication
     Dosage: BLOOD PRESSURE MEDICATION WAS DECREASED
  5. TAMSULOSIN [Concomitant]
     Active Substance: TAMSULOSIN
  6. ACETAMINOPHEN [Concomitant]
     Active Substance: ACETAMINOPHEN
     Dosage: WHEN NEEDED

REACTIONS (14)
  - Sinus arrest [Recovered/Resolved]
  - Electrocardiogram abnormal [Recovered/Resolved]
  - Fall [Recovered/Resolved]
  - General physical health deterioration [Unknown]
  - Hypotension [Recovered/Resolved]
  - Balance disorder [Recovering/Resolving]
  - Contusion [Unknown]
  - Tongue dry [Unknown]
  - Scratch [Unknown]
  - Feeling hot [Unknown]
  - Eye movement disorder [Unknown]
  - Somnolence [Unknown]
  - Dehydration [Unknown]
  - Pallor [Unknown]
